FAERS Safety Report 6248537-7 (Version None)
Quarter: 2009Q2

REPORT INFORMATION
  Report Type: 
  Country: None (occurrence: None)
  Receive Date: 20090629
  Receipt Date: 20090624
  Transmission Date: 20091009
  Serious: Yes (Hospitalization)
  Sender: FDA-Public Use
  Company Number: FR-BRISTOL-MYERS SQUIBB COMPANY-14678767

PATIENT
  Age: 28 Year
  Sex: Female

DRUGS (4)
  1. COUMADIN [Suspect]
     Dosage: 8DF-8TABS
     Route: 048
  2. CORVASAL [Suspect]
     Dosage: 6DF-6TABS
     Route: 048
  3. IKOREL [Suspect]
     Dosage: 4DF-4TABS
     Route: 048
  4. TENORMIN [Suspect]
     Dosage: 3DF-3TABS
     Route: 048

REACTIONS (2)
  - ARRHYTHMIA [None]
  - INTENTIONAL OVERDOSE [None]
